FAERS Safety Report 18086612 (Version 1)
Quarter: 2020Q3

REPORT INFORMATION
  Report Type: Spontaneous
  Country: US (occurrence: US)
  Receive Date: 20200728
  Receipt Date: 20200728
  Transmission Date: 20201103
  Serious: No
  Sender: FDA-Public Use
  Company Number: None

PATIENT
  Age: 54 Year
  Sex: Female

DRUGS (1)
  1. RIGEM PERSONAL CARE HAND SANITIZER [Suspect]
     Active Substance: ALCOHOL

REACTIONS (4)
  - Decreased appetite [None]
  - Nausea [None]
  - Product odour abnormal [None]
  - Vomiting [None]

NARRATIVE: CASE EVENT DATE: 20200618
